FAERS Safety Report 9239128 (Version 18)
Quarter: 2015Q4

REPORT INFORMATION
  Report Type: Report from Study
  Country: US (occurrence: US)
  Receive Date: 20130418
  Receipt Date: 20151119
  Transmission Date: 20160305
  Serious: Yes (Other)
  Sender: FDA-Public Use
  Company Number: US-SANOFI-AVENTIS-2013SA038853

PATIENT
  Age: 58 Year
  Sex: Female
  Weight: 68.03 kg

DRUGS (13)
  1. AUBAGIO [Suspect]
     Active Substance: TERIFLUNOMIDE
     Indication: MULTIPLE SCLEROSIS
     Route: 048
     Dates: start: 20130206, end: 20130307
  2. AUBAGIO [Suspect]
     Active Substance: TERIFLUNOMIDE
     Indication: MULTIPLE SCLEROSIS
     Route: 048
     Dates: start: 20130912, end: 20140318
  3. AMPYRA [Concomitant]
     Active Substance: DALFAMPRIDINE
     Indication: GAIT DISTURBANCE
     Dosage: STOP DATE: MAR/APR-2015
     Dates: start: 2012
  4. AUBAGIO [Suspect]
     Active Substance: TERIFLUNOMIDE
     Indication: MULTIPLE SCLEROSIS
     Route: 048
     Dates: end: 201504
  5. AMPYRA [Concomitant]
     Active Substance: DALFAMPRIDINE
     Indication: MULTIPLE SCLEROSIS
     Dates: start: 20010101
  6. AMPYRA [Concomitant]
     Active Substance: DALFAMPRIDINE
     Indication: MULTIPLE SCLEROSIS
     Dosage: STOP DATE: MAR/APR-2015
     Dates: start: 2012
  7. AMPYRA [Concomitant]
     Active Substance: DALFAMPRIDINE
     Indication: ILL-DEFINED DISORDER
     Dosage: STOP DATE: MAR/APR-2015
     Dates: start: 2012
  8. AUBAGIO [Suspect]
     Active Substance: TERIFLUNOMIDE
     Indication: MULTIPLE SCLEROSIS
     Route: 048
  9. AMPYRA [Concomitant]
     Active Substance: DALFAMPRIDINE
     Indication: ILL-DEFINED DISORDER
     Dates: start: 20010101
  10. AMPYRA [Concomitant]
     Active Substance: DALFAMPRIDINE
     Indication: GAIT DISTURBANCE
     Dates: start: 20010101
  11. AUBAGIO [Suspect]
     Active Substance: TERIFLUNOMIDE
     Indication: MULTIPLE SCLEROSIS
     Route: 048
     Dates: start: 20130415
  12. AUBAGIO [Suspect]
     Active Substance: TERIFLUNOMIDE
     Indication: MULTIPLE SCLEROSIS
     Route: 048
     Dates: start: 20121216
  13. AUBAGIO [Suspect]
     Active Substance: TERIFLUNOMIDE
     Indication: MULTIPLE SCLEROSIS
     Route: 048
     Dates: start: 20140415

REACTIONS (13)
  - Anal haemorrhage [Recovered/Resolved]
  - Scratch [Unknown]
  - Confusional state [Unknown]
  - Faeces pale [Recovered/Resolved]
  - Multiple sclerosis [Not Recovered/Not Resolved]
  - Crying [Not Recovered/Not Resolved]
  - Haematuria [Recovered/Resolved]
  - Abdominal pain upper [Recovered/Resolved]
  - Depression [Not Recovered/Not Resolved]
  - Drug dose omission [Unknown]
  - Haematochezia [Recovered/Resolved]
  - Fall [Recovered/Resolved]
  - Decreased appetite [Recovered/Resolved]

NARRATIVE: CASE EVENT DATE: 201303
